FAERS Safety Report 11575452 (Version 1)
Quarter: 2015Q3

REPORT INFORMATION
  Report Type: Spontaneous
  Country: US (occurrence: None)
  Receive Date: 20150929
  Receipt Date: 20150929
  Transmission Date: 20151125
  Serious: Yes (Life-Threatening, Hospitalization, Disabling, Other)
  Sender: FDA-Public Use
  Company Number: None

PATIENT
  Age: 60 Year
  Sex: Male
  Weight: 95.26 kg

DRUGS (5)
  1. VIT D 12 [Concomitant]
  2. SEROQUEL [Suspect]
     Active Substance: QUETIAPINE FUMARATE
     Indication: INSOMNIA
     Route: 048
     Dates: start: 20150922, end: 20150926
  3. OMEPRAZOLE. [Concomitant]
     Active Substance: OMEPRAZOLE
  4. AUGMENTIN [Concomitant]
     Active Substance: AMOXICILLIN\CLAVULANATE POTASSIUM
  5. ONE A DAY MULTIVITAMIN [Concomitant]

REACTIONS (7)
  - Anxiety [None]
  - Stress [None]
  - Back pain [None]
  - Back injury [None]
  - Fall [None]
  - Drug administration error [None]
  - Loss of consciousness [None]

NARRATIVE: CASE EVENT DATE: 20150922
